FAERS Safety Report 20523309 (Version 1)
Quarter: 2022Q1

REPORT INFORMATION
  Report Type: Spontaneous
  Country: US (occurrence: US)
  Receive Date: 20220227
  Receipt Date: 20220227
  Transmission Date: 20220424
  Serious: No
  Sender: FDA-Public Use
  Company Number: US-TEVA-2022-US-2010285

PATIENT
  Sex: Male

DRUGS (2)
  1. ARMONAIR DIGIHALER [Suspect]
     Active Substance: FLUTICASONE PROPIONATE
     Route: 065
  2. PREDNISONE [Suspect]
     Active Substance: PREDNISONE
     Route: 065

REACTIONS (1)
  - Dental caries [Unknown]
